FAERS Safety Report 23777214 (Version 2)
Quarter: 2024Q2

REPORT INFORMATION
  Report Type: Spontaneous
  Country: JP (occurrence: JP)
  Receive Date: 20240424
  Receipt Date: 20240430
  Transmission Date: 20240716
  Serious: Yes (Other)
  Sender: FDA-Public Use
  Company Number: JP-BRISTOL-MYERS SQUIBB COMPANY-2024-063107

PATIENT
  Age: 75 Year
  Sex: Male

DRUGS (2)
  1. YERVOY [Suspect]
     Active Substance: IPILIMUMAB
     Indication: Non-small cell lung cancer
     Route: 041
     Dates: start: 202303
  2. OPDIVO [Suspect]
     Active Substance: NIVOLUMAB
     Indication: Non-small cell lung cancer
     Route: 041
     Dates: start: 202303

REACTIONS (13)
  - Myocarditis [Recovered/Resolved]
  - Liver disorder [Recovered/Resolved]
  - Myositis [Recovered/Resolved]
  - Non-small cell lung cancer [Unknown]
  - Malaise [Recovered/Resolved]
  - Myasthenia gravis [Recovered/Resolved]
  - Cough [Unknown]
  - Decreased appetite [Unknown]
  - Asthenia [Unknown]
  - Chest discomfort [Unknown]
  - Palpitations [Unknown]
  - Dyspnoea [Unknown]
  - Off label use [Unknown]

NARRATIVE: CASE EVENT DATE: 20230301
